FAERS Safety Report 5581160-6 (Version None)
Quarter: 2007Q4

REPORT INFORMATION
  Report Type: 
  Country: None (occurrence: None)
  Receive Date: 20071227
  Receipt Date: 20071213
  Transmission Date: 20080405
  Serious: Yes (Death, Other)
  Sender: FDA-Public Use
  Company Number: GXKR2007PL10701

PATIENT
  Age: 12 Year
  Sex: Female

DRUGS (4)
  1. PREDNISONE [Suspect]
     Indication: IMMUNOSUPPRESSION
  2. AZATHIOPRINE [Suspect]
     Indication: IMMUNOSUPPRESSION
  3. ANTITHYMOCYTE IMMUNOGLOBULIN(ANTITHYMOCYTE IMMUNOGLOBULIN) [Suspect]
     Indication: IMMUNOSUPPRESSION
  4. NYSTATIN [Concomitant]

REACTIONS (2)
  - ASPERGILLOSIS [None]
  - BACTERIAL INFECTION [None]
